FAERS Safety Report 7356362-9 (Version None)
Quarter: 2011Q1

REPORT INFORMATION
  Report Type: 
  Country: None (occurrence: None)
  Receive Date: 20110316
  Receipt Date: 20110311
  Transmission Date: 20110831
  Serious: Yes (Hospitalization)
  Sender: FDA-Public Use
  Company Number: NL-PFIZER INC-2011047478

PATIENT
  Age: 22 Year
  Sex: Female

DRUGS (2)
  1. KEPPRA [Suspect]
     Indication: EPILEPSY
     Dosage: 500 MG, 2X/DAY
     Dates: start: 20101015, end: 20110125
  2. STEDIRIL-30 [Suspect]
     Indication: CONTRACEPTION
     Dosage: UNK, 1X/DAY
     Dates: start: 20080101

REACTIONS (2)
  - DEPRESSION [None]
  - SUICIDE ATTEMPT [None]
